FAERS Safety Report 8546896-3 (Version None)
Quarter: 2012Q3

REPORT INFORMATION
  Report Type: 
  Country: None (occurrence: None)
  Receive Date: 20120727
  Receipt Date: 20120118
  Transmission Date: 20120928
  Serious: No
  Sender: FDA-Public Use
  Company Number: US-ASTRAZENECA-2012SE03466

PATIENT
  Age: 50 Year
  Sex: Male
  Weight: 106.6 kg

DRUGS (3)
  1. SEROQUEL XR [Suspect]
     Indication: BIPOLAR DISORDER
     Route: 048
  2. GABAPENTIN [Concomitant]
     Indication: BIPOLAR DISORDER
  3. HYDROXIN [Concomitant]
     Indication: BIPOLAR DISORDER

REACTIONS (4)
  - NECK PAIN [None]
  - ARTHRITIS [None]
  - ROTATOR CUFF SYNDROME [None]
  - MUSCULOSKELETAL PAIN [None]
